FAERS Safety Report 6121680-9 (Version None)
Quarter: 2009Q1

REPORT INFORMATION
  Report Type: 
  Country: None (occurrence: None)
  Receive Date: 20090317
  Receipt Date: 20090310
  Transmission Date: 20090719
  Serious: Yes (Hospitalization)
  Sender: FDA-Public Use
  Company Number: JP-SANOFI-SYNTHELABO-A01200902589

PATIENT
  Sex: Female

DRUGS (7)
  1. KYTRIL [Concomitant]
     Dosage: UNK
     Dates: start: 20080716
  2. NAUZELIN [Concomitant]
     Dosage: UNK
     Dates: start: 20080618
  3. MUCOSTA [Concomitant]
     Dosage: UNK
     Dates: start: 20080618
  4. AVASTIN [Suspect]
     Route: 041
     Dates: start: 20090205, end: 20090205
  5. LEVOFOLINATE [Suspect]
     Route: 041
     Dates: start: 20090205, end: 20090205
  6. FLUOROURACIL [Suspect]
     Route: 042
     Dates: start: 20090205, end: 20090206
  7. ELPLAT [Suspect]
     Indication: RECTAL CANCER METASTATIC
     Route: 041
     Dates: start: 20090205, end: 20090205

REACTIONS (3)
  - HYPERTENSION [None]
  - SUBARACHNOID HAEMORRHAGE [None]
  - WHITE BLOOD CELL COUNT DECREASED [None]
